FAERS Safety Report 4975493-1 (Version None)
Quarter: 2006Q2

REPORT INFORMATION
  Report Type: 
  Country: None (occurrence: None)
  Receive Date: 20060418
  Receipt Date: 20060130
  Transmission Date: 20061013
  Serious: Yes (Hospitalization)
  Sender: FDA-Public Use
  Company Number: GB-BRISTOL-MYERS SQUIBB COMPANY-13264692

PATIENT
  Age: 36 Year
  Sex: Male
  Weight: 76 kg

DRUGS (1)
  1. ABILIFY [Suspect]
     Indication: SCHIZOPHRENIA
     Dosage: 15 MG 03NOV05-28NOV05, 25 MG 28NOV05-01FEB06, 15 MG 02FEB06-06FEB06, 10 MG 07FEB06, STOPPED 15FEB06
     Route: 048
     Dates: start: 20051103, end: 20060215

REACTIONS (3)
  - AGITATION [None]
  - HOMICIDAL IDEATION [None]
  - PARANOIA [None]
